FAERS Safety Report 23294250 (Version 1)
Quarter: 2023Q4

REPORT INFORMATION
  Report Type: Spontaneous
  Country: US (occurrence: US)
  Receive Date: 20231213
  Receipt Date: 20231213
  Transmission Date: 20240110
  Serious: No
  Sender: FDA-Public Use
  Company Number: US-VIVUS LLC-2023V1001062

PATIENT
  Sex: Female
  Weight: 52.21 kg

DRUGS (1)
  1. PANCREAZE [Suspect]
     Active Substance: PANCRELIPASE AMYLASE\PANCRELIPASE LIPASE\PANCRELIPASE PROTEASE
     Indication: Product used for unknown indication
     Dosage: 21,000/54,700/8-3,900 USP UNITS
     Route: 048

REACTIONS (1)
  - Arthritis [Not Recovered/Not Resolved]
